FAERS Safety Report 7312222 (Version 3)
Quarter: 2017Q1

REPORT INFORMATION
  Report Type: Report from Study
  Country: US (occurrence: US)
  Receive Date: 20100310
  Receipt Date: 20170331
  Transmission Date: 20170429
  Serious: Yes (Hospitalization)
  Sender: FDA-Public Use
  Company Number: US-ROCHE-686340

PATIENT
  Age: 74 Year
  Sex: Male

DRUGS (8)
  1. GLIPIZIDE. [Concomitant]
     Active Substance: GLIPIZIDE
  2. AUGMENTIN [Concomitant]
     Active Substance: AMOXICILLIN\CLAVULANATE POTASSIUM
  3. ALLOPURINOL. [Concomitant]
     Active Substance: ALLOPURINOL
     Route: 065
  4. LOVENOX [Concomitant]
     Active Substance: ENOXAPARIN SODIUM
  5. ATENOLOL. [Concomitant]
     Active Substance: ATENOLOL
  6. MAXZIDE [Concomitant]
     Active Substance: HYDROCHLOROTHIAZIDE\TRIAMTERENE
  7. ERLOTINIB [Suspect]
     Active Substance: ERLOTINIB
     Indication: HEPATOCELLULAR CARCINOMA
     Dosage: FREQUENCY: DAILY EVERY 28 DAYS
     Route: 048
     Dates: start: 20100201, end: 20100208
  8. BEVACIZUMAB [Suspect]
     Active Substance: BEVACIZUMAB
     Indication: HEPATOCELLULAR CARCINOMA
     Dosage: DAY 1 AND DAY 15 EVERY 28 DAYS
     Route: 042

REACTIONS (7)
  - Hyponatraemia [Unknown]
  - Pyrexia [Unknown]
  - Dehydration [Unknown]
  - Pleural effusion [Unknown]
  - Pharyngitis [Recovered/Resolved]
  - Cough [Unknown]
  - Diarrhoea [Unknown]

NARRATIVE: CASE EVENT DATE: 20100208
